FAERS Safety Report 9949105 (Version 2)
Quarter: 2014Q2

REPORT INFORMATION
  Report Type: Spontaneous
  Country: FR (occurrence: FR)
  Receive Date: 20140304
  Receipt Date: 20140402
  Transmission Date: 20141212
  Serious: Yes (Death)
  Sender: FDA-Public Use
  Company Number: FR-ROCHE-1358879

PATIENT
  Age: 54 Year
  Sex: Male

DRUGS (1)
  1. ROCEPHINE [Suspect]
     Indication: BRONCHITIS
     Route: 065
     Dates: start: 20140225

REACTIONS (4)
  - Cardiac arrest [Fatal]
  - Malaise [Fatal]
  - Rash erythematous [Fatal]
  - Bronchospasm [Fatal]
